FAERS Safety Report 10090282 (Version 2)
Quarter: 2014Q2

REPORT INFORMATION
  Report Type: Report from Study
  Country: BR (occurrence: BR)
  Receive Date: 20140421
  Receipt Date: 20140624
  Transmission Date: 20141212
  Serious: Yes (Other)
  Sender: FDA-Public Use
  Company Number: PHHY2014BR047539

PATIENT
  Sex: Female
  Weight: 50 kg

DRUGS (2)
  1. CENTRUM [Concomitant]
     Dosage: 1 DF, (DAILY 1 TABLET)
  2. ACLASTA [Suspect]
     Indication: OSTEOPOROSIS
     Dosage: 1 DF, (ANNUALLY ONCE)
     Route: 042
     Dates: start: 2010

REACTIONS (4)
  - Memory impairment [Not Recovered/Not Resolved]
  - Dizziness [Not Recovered/Not Resolved]
  - Oedema peripheral [Not Recovered/Not Resolved]
  - Arthralgia [Not Recovered/Not Resolved]
